FAERS Safety Report 9217817 (Version 1)
Quarter: 2013Q2

REPORT INFORMATION
  Report Type: Spontaneous
  Country: US (occurrence: US)
  Receive Date: 20130408
  Receipt Date: 20130408
  Transmission Date: 20140414
  Serious: Yes (Other)
  Sender: FDA-Public Use
  Company Number: US-AMGEN-USASP2013023298

PATIENT
  Age: 66 Year
  Sex: Female

DRUGS (1)
  1. PROLIA [Suspect]
     Indication: OSTEOPOROSIS POSTMENOPAUSAL

REACTIONS (10)
  - Mitral valve prolapse [Unknown]
  - Pain [Unknown]
  - Bone pain [Unknown]
  - Back pain [Unknown]
  - Sciatica [Not Recovered/Not Resolved]
  - Immobile [Not Recovered/Not Resolved]
  - Dysstasia [Not Recovered/Not Resolved]
  - Cyst [Not Recovered/Not Resolved]
  - Hypertension [Unknown]
  - Blood cholesterol increased [Unknown]
